FAERS Safety Report 16354474 (Version 1)
Quarter: 2019Q2

REPORT INFORMATION
  Report Type: Report from Study
  Country: CA (occurrence: CA)
  Receive Date: 20190524
  Receipt Date: 20190524
  Transmission Date: 20190711
  Serious: Yes (Death)
  Sender: FDA-Public Use
  Company Number: CA-ACTELION-A-NJ2019-189925

PATIENT
  Age: 68 Year
  Sex: Female

DRUGS (10)
  1. MELOXICAM. [Concomitant]
     Active Substance: MELOXICAM
  2. VIAGRA [Concomitant]
     Active Substance: SILDENAFIL CITRATE
  3. PREDNISONE. [Concomitant]
     Active Substance: PREDNISONE
  4. RABEPRAZOLE [Concomitant]
     Active Substance: RABEPRAZOLE
  5. UPTRAVI [Suspect]
     Active Substance: SELEXIPAG
     Indication: PULMONARY ARTERIAL HYPERTENSION
     Dosage: 200 MCG, BID
     Route: 048
     Dates: start: 20190410
  6. UPTRAVI [Suspect]
     Active Substance: SELEXIPAG
     Dosage: 600 MCG
     Route: 048
     Dates: start: 20190410
  7. IRBESARTAN. [Concomitant]
     Active Substance: IRBESARTAN
  8. AMITRIPTYLINE [Concomitant]
     Active Substance: AMITRIPTYLINE
  9. TRACLEER [Suspect]
     Active Substance: BOSENTAN
     Indication: PULMONARY ARTERIAL HYPERTENSION
     Dosage: 125 MG, BID
     Route: 048
  10. T3 [Concomitant]
     Active Substance: LIOTHYRONINE SODIUM

REACTIONS (3)
  - Skin ulcer [Unknown]
  - Death [Fatal]
  - Malaise [Unknown]

NARRATIVE: CASE EVENT DATE: 20190512
